FAERS Safety Report 4618076-5 (Version None)
Quarter: 2005Q1

REPORT INFORMATION
  Report Type: 
  Country: None (occurrence: None)
  Receive Date: 20050322
  Receipt Date: 20050308
  Transmission Date: 20050727
  Serious: Yes (Other)
  Sender: FDA-Public Use
  Company Number: DSA_26058_2005

PATIENT
  Age: 73 Year

DRUGS (5)
  1. ENALAPRIL MALEATE [Suspect]
     Dosage: 10 MG Q DAY PO
     Route: 048
  2. AMLODIPINE BESYLATE [Suspect]
     Dosage: 5 MG 1 DAY PO
     Route: 048
  3. ASPIRIN [Suspect]
     Dosage: 150 MG Q DAY PO
     Route: 048
  4. BENDROFLUMETHIAZIDE [Concomitant]
  5. SIMVASTATIN [Concomitant]

REACTIONS (1)
  - RETINAL VEIN OCCLUSION [None]
